FAERS Safety Report 20775142 (Version 1)
Quarter: 2022Q2

REPORT INFORMATION
  Report Type: Spontaneous
  Country: US (occurrence: None)
  Receive Date: 20220502
  Receipt Date: 20220502
  Transmission Date: 20220721
  Serious: Yes (Hospitalization)
  Sender: FDA-Public Use
  Company Number: None

PATIENT
  Age: 79 Year
  Sex: Female

DRUGS (16)
  1. NUCALA [Suspect]
     Active Substance: MEPOLIZUMAB
     Indication: Psoriatic arthropathy
     Dosage: OTHER FREQUENCY : EVERY 28 DAYS;?
     Route: 058
     Dates: start: 20200905
  2. AMLODIPINE TAB [Concomitant]
  3. ATORVASTATIN [Concomitant]
     Active Substance: ATORVASTATIN
  4. CITALOPRAM TAB [Concomitant]
  5. EUTHYROX TAB [Concomitant]
  6. FENOFIBRATE TAB [Concomitant]
  7. FUROSEMIDE TAB [Concomitant]
  8. INCRUSE ELPT INH [Concomitant]
  9. INDAPAMIDE TAB [Concomitant]
  10. JANUVIA TAB [Concomitant]
  11. METFORMIN TAB [Concomitant]
  12. MIRTAZAPINE TAB [Concomitant]
  13. MONTELUKAST SODIUM [Concomitant]
     Active Substance: MONTELUKAST SODIUM
  14. NYSTATIN [Concomitant]
     Active Substance: NYSTATIN
  15. PANTOPRAZOLE TAB [Concomitant]
  16. TRIAMCINOLON OIN [Concomitant]

REACTIONS (1)
  - Spinal operation [None]

NARRATIVE: CASE EVENT DATE: 20220309
